FAERS Safety Report 24800007 (Version 3)
Quarter: 2025Q1

REPORT INFORMATION
  Report Type: Report from Study
  Country: CA (occurrence: CA)
  Receive Date: 20250102
  Receipt Date: 20250318
  Transmission Date: 20250408
  Serious: Yes (Hospitalization)
  Sender: NOVARTIS
  Company Number: CA-002147023-NVSC2024CA227740

PATIENT
  Age: 71 Year
  Sex: Male

DRUGS (1)
  1. COSENTYX [Suspect]
     Active Substance: SECUKINUMAB
     Indication: Psoriasis
     Dosage: 300 MG, QMO
     Route: 058
     Dates: start: 20240919

REACTIONS (7)
  - Decreased immune responsiveness [Unknown]
  - Illness [Unknown]
  - COVID-19 [Unknown]
  - Cardiac disorder [Unknown]
  - Lung neoplasm malignant [Unknown]
  - Psoriasis [Unknown]
  - Malaise [Unknown]

NARRATIVE: CASE EVENT DATE: 20250301
